FAERS Safety Report 5465638-1 (Version None)
Quarter: 2007Q3

REPORT INFORMATION
  Report Type: 
  Country: None (occurrence: None)
  Receive Date: 20070924
  Receipt Date: 20070913
  Transmission Date: 20080115
  Serious: Yes (Hospitalization)
  Sender: FDA-Public Use
  Company Number: AU-ASTRAZENECA-2007AP05812

PATIENT
  Age: 26342 Day
  Sex: Male
  Weight: 122 kg

DRUGS (7)
  1. CRESTOR [Suspect]
     Route: 048
     Dates: start: 20061215, end: 20070304
  2. CARDIZEM [Suspect]
     Route: 048
  3. ATENOLOL [Concomitant]
  4. ZYLOPRIM [Concomitant]
  5. OMEPRAZOLE [Concomitant]
  6. MAREVAN [Concomitant]
  7. NUELIN-SR [Concomitant]

REACTIONS (4)
  - BRADYCARDIA [None]
  - DIZZINESS [None]
  - GAIT DISTURBANCE [None]
  - NECK PAIN [None]
